FAERS Safety Report 24455847 (Version 2)
Quarter: 2024Q4

REPORT INFORMATION
  Report Type: Report from Study
  Country: US (occurrence: US)
  Receive Date: 20241017
  Receipt Date: 20241018
  Transmission Date: 20250115
  Serious: No
  Sender: ROCHE
  Company Number: US-ROCHE-3486942

PATIENT
  Age: 52 Year
  Sex: Female
  Weight: 97.79 kg

DRUGS (13)
  1. RITUXAN [Suspect]
     Active Substance: RITUXIMAB
     Indication: Iridocyclitis
     Dosage: FOR EVERY 4 MONTH(S)
     Route: 041
     Dates: start: 202112, end: 202311
  2. XOLAIR [Suspect]
     Active Substance: OMALIZUMAB
     Indication: Product used for unknown indication
     Route: 065
  3. ACTEMRA [Suspect]
     Active Substance: TOCILIZUMAB
     Indication: Iridocyclitis
     Dosage: 4 MG/KG IN 100CC NS IV OVER ONE HOURS EVERY 4 WEEKS
     Route: 042
     Dates: start: 20231208
  4. LORATADINE [Concomitant]
     Active Substance: LORATADINE
     Dosage: 10 MG PO
  5. TYLENOL [Concomitant]
     Active Substance: ACETAMINOPHEN
     Dosage: 650 MG PO
  6. CARBAMAZEPINE [Concomitant]
     Active Substance: CARBAMAZEPINE
     Dosage: 200 MG TABLET EXTENDED RELEASE 12 HR
  7. SODIUM CHLORIDE [Concomitant]
     Active Substance: SODIUM CHLORIDE
     Dosage: 0.9 % INJECTION SYRINGE
  8. DIPHENHYDRAMINE [Concomitant]
     Active Substance: DIPHENHYDRAMINE
     Dosage: 50 MG/ML INJECTION SYRINGE
  9. EPIPEN [Concomitant]
     Active Substance: EPINEPHRINE
     Dosage: 0.3 MG/0.3 ML INJECTION
  10. RESTASIS [Concomitant]
     Active Substance: CYCLOSPORINE
     Dosage: 0.05 % EYE DROPPERETTE
  11. SOLU-MEDROL [Concomitant]
     Active Substance: METHYLPREDNISOLONE SODIUM SUCCINATE
     Dosage: 125MG/2ML SOLUTION FOR INJECTION
  12. TRUXIMA [Concomitant]
     Active Substance: RITUXIMAB-ABBS
     Dosage: 10 MG/ML INTRAVENOUS SOLUTION
  13. VITAMIN D3 [Concomitant]
     Active Substance: CHOLECALCIFEROL
     Dosage: 2000 UNIT CAPSULE

REACTIONS (2)
  - Off label use [Unknown]
  - Drug hypersensitivity [Unknown]
